FAERS Safety Report 25392142 (Version 1)
Quarter: 2025Q2

REPORT INFORMATION
  Report Type: Spontaneous
  Country: US (occurrence: US)
  Receive Date: 20250603
  Receipt Date: 20250603
  Transmission Date: 20250716
  Serious: No
  Sender: Kenvue
  Company Number: US-KENVUE-20250507628

PATIENT
  Age: 76 Year
  Sex: Female
  Weight: 92.1 kg

DRUGS (6)
  1. TYLENOL [Suspect]
     Active Substance: ACETAMINOPHEN
     Indication: Headache
     Route: 065
     Dates: start: 202505
  2. TYVASO DPI [Concomitant]
     Active Substance: TREPROSTINIL
     Indication: Pulmonary hypertension
     Dosage: 72 MICROGRAM, FOUR TIME A DAY
     Dates: end: 20250505
  3. TYVASO DPI [Concomitant]
     Active Substance: TREPROSTINIL
     Indication: Interstitial lung disease
     Dosage: 64 MICROGRAM, FOUR TIME A DAY
     Dates: start: 20250505
  4. TRAMADOL [Concomitant]
     Active Substance: TRAMADOL
     Indication: Headache
     Route: 065
  5. TADALAFIL [Concomitant]
     Active Substance: TADALAFIL
     Indication: Product used for unknown indication
     Route: 065
  6. OFEV [Concomitant]
     Active Substance: NINTEDANIB
     Indication: Product used for unknown indication
     Route: 065

REACTIONS (1)
  - Drug ineffective [Unknown]

NARRATIVE: CASE EVENT DATE: 20250501
